FAERS Safety Report 9694840 (Version 1)
Quarter: 2013Q4

REPORT INFORMATION
  Report Type: Report from Study
  Country: GB (occurrence: GB)
  Receive Date: 20131119
  Receipt Date: 20131119
  Transmission Date: 20140711
  Serious: Yes (Hospitalization)
  Sender: FDA-Public Use
  Company Number: GB-ROCHE-1305017

PATIENT
  Sex: Female
  Weight: 68 kg

DRUGS (2)
  1. RITUXIMAB [Suspect]
     Indication: RHEUMATOID ARTHRITIS
     Route: 065
     Dates: start: 20080115
  2. METHOTREXATE [Concomitant]

REACTIONS (2)
  - Diarrhoea [Unknown]
  - Vomiting [Unknown]
